FAERS Safety Report 6733095-0 (Version None)
Quarter: 2010Q2

REPORT INFORMATION
  Report Type: 
  Country: None (occurrence: None)
  Receive Date: 20100518
  Receipt Date: 20100506
  Transmission Date: 20101027
  Serious: Yes (Life-Threatening, Hospitalization)
  Sender: FDA-Public Use
  Company Number: 2010-00505

PATIENT
  Age: 64 Year
  Sex: Male

DRUGS (4)
  1. PERINDOPRIL [Suspect]
     Indication: ACUTE MYOCARDIAL INFARCTION
     Dosage: 4 MG, ORAL
     Route: 048
     Dates: start: 20100301, end: 20100420
  2. ASPIRIN [Concomitant]
  3. CLOPIDOGREL [Concomitant]
  4. SIMVASTATIN [Concomitant]

REACTIONS (3)
  - ANGIOEDEMA [None]
  - SALIVARY GLAND ENLARGEMENT [None]
  - SWOLLEN TONGUE [None]
